FAERS Safety Report 13915787 (Version 2)
Quarter: 2017Q3

REPORT INFORMATION
  Report Type: Report from Study
  Country: CO (occurrence: CO)
  Receive Date: 20170829
  Receipt Date: 20170912
  Transmission Date: 20171127
  Serious: Yes (Hospitalization)
  Sender: FDA-Public Use
  Company Number: PHHY2017CO125343

PATIENT
  Sex: Male
  Weight: 55 kg

DRUGS (2)
  1. SANDOSTATIN LAR DEPOT [Suspect]
     Active Substance: OCTREOTIDE ACETATE
     Indication: NEUROENDOCRINE TUMOUR
     Dosage: 30 MG, QMO
     Route: 030
     Dates: start: 20170425
  2. AFINITOR [Suspect]
     Active Substance: EVEROLIMUS
     Indication: NEUROENDOCRINE TUMOUR
     Dosage: 10 MG, QD
     Route: 048
     Dates: start: 20170309, end: 201704

REACTIONS (6)
  - Pyrexia [Unknown]
  - Recurrent cancer [Unknown]
  - Headache [Unknown]
  - Urinary tract infection [Unknown]
  - Psychiatric symptom [Recovered/Resolved]
  - Dizziness [Recovered/Resolved]
